FAERS Safety Report 24957575 (Version 2)
Quarter: 2025Q1

REPORT INFORMATION
  Report Type: Report from Study
  Country: US (occurrence: US)
  Receive Date: 20250212
  Receipt Date: 20250225
  Transmission Date: 20250408
  Serious: Yes (Other)
  Sender: ABBVIE
  Company Number: US-ABBVIE-6122345

PATIENT
  Age: 67 Year
  Sex: Female

DRUGS (1)
  1. SKYRIZI [Suspect]
     Active Substance: RISANKIZUMAB-RZAA
     Indication: Psoriatic arthropathy
     Route: 058
     Dates: start: 202104

REACTIONS (22)
  - Arthritis [Recovered/Resolved]
  - Peripheral swelling [Not Recovered/Not Resolved]
  - Platelet count abnormal [Not Recovered/Not Resolved]
  - Cardiac failure congestive [Not Recovered/Not Resolved]
  - Blindness [Unknown]
  - Head injury [Unknown]
  - Therapeutic product effect incomplete [Unknown]
  - Musculoskeletal stiffness [Not Recovered/Not Resolved]
  - Fall [Unknown]
  - Respiratory disorder [Not Recovered/Not Resolved]
  - Headache [Unknown]
  - Therapeutic product effect decreased [Unknown]
  - Retinal disorder [Unknown]
  - Dizziness [Recovered/Resolved]
  - Blister [Not Recovered/Not Resolved]
  - Skin laceration [Unknown]
  - Miliaria [Not Recovered/Not Resolved]
  - Rash papular [Not Recovered/Not Resolved]
  - Cognitive disorder [Unknown]
  - Anaemia [Unknown]
  - Drug ineffective [Unknown]
  - Fall [Unknown]

NARRATIVE: CASE EVENT DATE: 20210401
